FAERS Safety Report 8082130-9 (Version None)
Quarter: 2012Q1

REPORT INFORMATION
  Report Type: 
  Country: None (occurrence: None)
  Receive Date: 20120127
  Receipt Date: 20110207
  Transmission Date: 20120608
  Serious: No
  Sender: FDA-Public Use
  Company Number: US-ABBOTT-11P-163-0704293-00

PATIENT
  Sex: Female
  Weight: 83.082 kg

DRUGS (2)
  1. METHOTREXATE [Concomitant]
     Indication: RHEUMATOID ARTHRITIS
     Dosage: 6 TABS EVERY SATURDAY.
  2. HUMIRA [Suspect]
     Indication: RHEUMATOID ARTHRITIS
     Route: 058
     Dates: start: 20070101

REACTIONS (5)
  - VISUAL IMPAIRMENT [None]
  - UPPER RESPIRATORY TRACT INFECTION [None]
  - DIZZINESS [None]
  - SPUTUM DISCOLOURED [None]
  - COUGH [None]
